FAERS Safety Report 7166597-6 (Version None)
Quarter: 2010Q4

REPORT INFORMATION
  Report Type: 
  Country: None (occurrence: None)
  Receive Date: 20101216
  Receipt Date: 20101207
  Transmission Date: 20110411
  Serious: Yes (Other)
  Sender: FDA-Public Use
  Company Number: US-JNJCH-2010024081

PATIENT
  Age: 58 Year
  Sex: Female
  Weight: 59 kg

DRUGS (1)
  1. PURELL UNSPECIFIED [Suspect]
     Indication: PROPHYLAXIS
     Dosage: TEXT:QUARTER TEASPOONFUL FIVE TIMES A DAY
     Route: 061
     Dates: start: 20091001, end: 20091001

REACTIONS (4)
  - BLISTER [None]
  - BURNING SENSATION [None]
  - RASH [None]
  - SKIN HAEMORRHAGE [None]
